FAERS Safety Report 14188999 (Version 1)
Quarter: 2017Q4

REPORT INFORMATION
  Report Type: Spontaneous
  Country: KR (occurrence: KR)
  Receive Date: 20171115
  Receipt Date: 20171115
  Transmission Date: 20180321
  Serious: Yes (Hospitalization, Other)
  Sender: FDA-Public Use
  Company Number: KR-MACLEODS PHARMACEUTICALS US LTD-MAC2017006317

PATIENT

DRUGS (5)
  1. FLURAZEPAM [Suspect]
     Active Substance: FLURAZEPAM\FLURAZEPAM HYDROCHLORIDE
     Indication: PRODUCT USED FOR UNKNOWN INDICATION
     Dosage: 15 MG, (30 TABLETS AS  SINGLE DOSE)
     Route: 048
  2. QUETIAPINE 25MG TABLET ^AMEL^ [Suspect]
     Active Substance: QUETIAPINE
     Indication: PRODUCT USED FOR UNKNOWN INDICATION
     Dosage: 25 MG, (30 TABLETS AS SINGLE DOSE)
     Route: 048
  3. ZOLPIDEM TARTRATE. [Suspect]
     Active Substance: ZOLPIDEM TARTRATE
     Indication: PRODUCT USED FOR UNKNOWN INDICATION
     Dosage: 10 MG, (30 TABLETS AS SINGLE DOSE)
     Route: 048
  4. FLUNITRAZEPAM [Suspect]
     Active Substance: FLUNITRAZEPAM
     Indication: PRODUCT USED FOR UNKNOWN INDICATION
     Dosage: 1 MG, (30 TABLETS AS SINGLE DOSE)
     Route: 048
  5. DIAZEPAM. [Suspect]
     Active Substance: DIAZEPAM
     Indication: PRODUCT USED FOR UNKNOWN INDICATION
     Dosage: 2 MG, (30 TABLETS AS SINGLE DOSE)
     Route: 048

REACTIONS (8)
  - Sciatic nerve neuropathy [Recovering/Resolving]
  - Toxicity to various agents [Recovered/Resolved]
  - Hypoaesthesia [Recovering/Resolving]
  - Stupor [Recovered/Resolved]
  - Pain in extremity [Recovering/Resolving]
  - Sciatic nerve injury [Recovering/Resolving]
  - Paraesthesia [Recovering/Resolving]
  - Muscular weakness [Recovering/Resolving]
